FAERS Safety Report 11223890 (Version 1)
Quarter: 2015Q2

REPORT INFORMATION
  Report Type: Spontaneous
  Country: FR (occurrence: FR)
  Receive Date: 20150629
  Receipt Date: 20150629
  Transmission Date: 20150821
  Serious: Yes (Hospitalization)
  Sender: FDA-Public Use
  Company Number: FR-ASTRAZENECA-2015SE62399

PATIENT
  Age: 20975 Day
  Sex: Male

DRUGS (6)
  1. BRILIQUE [Suspect]
     Active Substance: TICAGRELOR
     Indication: ACUTE CORONARY SYNDROME
     Route: 048
     Dates: start: 20150604, end: 201506
  2. ARIXTRA [Concomitant]
     Active Substance: FONDAPARINUX SODIUM
     Dates: start: 20150604
  3. ACE [Concomitant]
     Dates: start: 201506
  4. ASPEGIC [Concomitant]
     Active Substance: ASPIRIN DL-LYSINE
     Dates: start: 20150604
  5. BETABLOCKERS [Concomitant]
     Active Substance: UNSPECIFIED INGREDIENT
     Dates: start: 201506
  6. KARDEGIC [Concomitant]
     Active Substance: ASPIRIN LYSINE
     Dates: start: 201506

REACTIONS (2)
  - Eosinophilia [Not Recovered/Not Resolved]
  - Rash maculo-papular [Not Recovered/Not Resolved]

NARRATIVE: CASE EVENT DATE: 20150605
